FAERS Safety Report 18480576 (Version 1)
Quarter: 2020Q4

REPORT INFORMATION
  Report Type: Spontaneous
  Country: US (occurrence: US)
  Receive Date: 20201109
  Receipt Date: 20201109
  Transmission Date: 20210114
  Serious: Yes (Disabling, Other)
  Sender: FDA-Public Use
  Company Number: None

PATIENT
  Age: 59 Year
  Sex: Female
  Weight: 59.4 kg

DRUGS (11)
  1. GABAPENTIN. [Concomitant]
     Active Substance: GABAPENTIN
  2. ACETAMINOPHEN. [Concomitant]
     Active Substance: ACETAMINOPHEN
  3. MAGNESIUM [Concomitant]
     Active Substance: MAGNESIUM
  4. NEUPRO [Concomitant]
     Active Substance: ROTIGOTINE
  5. NAC [Concomitant]
  6. CIPROFLOXACIN. [Suspect]
     Active Substance: CIPROFLOXACIN
     Indication: URINARY TRACT INFECTION
     Dates: start: 20160707, end: 20160717
  7. MULTI VITAMIN [Concomitant]
     Active Substance: VITAMINS
  8. CALCIUM [Concomitant]
     Active Substance: CALCIUM
  9. LEVOTHYROXINE. [Concomitant]
     Active Substance: LEVOTHYROXINE
  10. ESTROGEN INSERT [Concomitant]
  11. ESTROGEN PATCH [Concomitant]
     Active Substance: ESTRADIOL

REACTIONS (24)
  - Fibromyalgia [None]
  - Arthritis [None]
  - Tendon disorder [None]
  - Restless legs syndrome [None]
  - Panic attack [None]
  - Connective tissue disorder [None]
  - Sluggishness [None]
  - Depression [None]
  - Bedridden [None]
  - Anger [None]
  - Tenderness [None]
  - Swelling [None]
  - Insomnia [None]
  - Tinnitus [None]
  - Memory impairment [None]
  - Spinal stenosis [None]
  - Fatigue [None]
  - Pain in extremity [None]
  - Anxiety [None]
  - Arthralgia [None]
  - Impaired work ability [None]
  - Depressed level of consciousness [None]
  - Palpitations [None]
  - Vitreous floaters [None]

NARRATIVE: CASE EVENT DATE: 20160707
